FAERS Safety Report 5863265-5 (Version None)
Quarter: 2008Q3

REPORT INFORMATION
  Report Type: 
  Country: None (occurrence: None)
  Receive Date: 20080828
  Receipt Date: 20080821
  Transmission Date: 20090109
  Serious: Yes (Other)
  Sender: FDA-Public Use
  Company Number: US-ASTRAZENECA-2008UW02206

PATIENT
  Age: 604 Month
  Sex: Male
  Weight: 74.8 kg

DRUGS (3)
  1. SEROQUEL [Suspect]
     Indication: BIPOLAR DISORDER
     Route: 048
     Dates: start: 20070101, end: 20070201
  2. LITHIUM CARBONATE [Concomitant]
     Dates: start: 19970101, end: 20020101
  3. DEPAKOTE [Concomitant]

REACTIONS (3)
  - CONFUSIONAL STATE [None]
  - DEMENTIA [None]
  - TREMOR [None]
